APPROVED DRUG PRODUCT: FLUTEX
Active Ingredient: TRIAMCINOLONE ACETONIDE
Strength: 0.1%
Dosage Form/Route: OINTMENT;TOPICAL
Application: A087377 | Product #001
Applicant: IVAX PHARMACEUTICALS INC
Approved: Nov 1, 1988 | RLD: No | RS: No | Type: DISCN